FAERS Safety Report 13868258 (Version 1)
Quarter: 2017Q3

REPORT INFORMATION
  Report Type: Report from Study
  Country: US (occurrence: US)
  Receive Date: 20170815
  Receipt Date: 20170815
  Transmission Date: 20171127
  Serious: No
  Sender: FDA-Public Use
  Company Number: PHEH2017US025192

PATIENT
  Sex: Male

DRUGS (1)
  1. ENTACAPONE. [Suspect]
     Active Substance: ENTACAPONE
     Indication: PRODUCT USED FOR UNKNOWN INDICATION
     Dosage: 24/26 MG, 2 SX DAT
     Route: 065

REACTIONS (2)
  - Dyspnoea [Unknown]
  - Productive cough [Unknown]
